FAERS Safety Report 12466407 (Version 1)
Quarter: 2016Q2

REPORT INFORMATION
  Report Type: Report from Study
  Country: CA (occurrence: CA)
  Receive Date: 20160615
  Receipt Date: 20160615
  Transmission Date: 20160815
  Serious: Yes (Hospitalization, Other)
  Sender: FDA-Public Use
  Company Number: CA-AMGEN-CANSL2016074327

PATIENT
  Age: 43 Year
  Sex: Female

DRUGS (14)
  1. ASA [Concomitant]
     Active Substance: ASPIRIN
     Dosage: 81 UNK, UNK
  2. PREDNISONE. [Concomitant]
     Active Substance: PREDNISONE
  3. FOLIC ACID. [Concomitant]
     Active Substance: FOLIC ACID
     Dosage: 1 MG, UNK
  4. CARDIZEM CD [Concomitant]
     Active Substance: DILTIAZEM HYDROCHLORIDE
     Dosage: 240 MG, UNK
  5. FLAGYL [Concomitant]
     Active Substance: METRONIDAZOLE\METRONIDAZOLE HYDROCHLORIDE
  6. METHOTREXATE [Concomitant]
     Active Substance: METHOTREXATE
     Dosage: 15 MG, UNK
  7. LIPITOR [Concomitant]
     Active Substance: ATORVASTATIN CALCIUM
     Dosage: 10 MG, UNK
  8. PLAQUENIL [Concomitant]
     Active Substance: HYDROXYCHLOROQUINE SULFATE
     Dosage: 400 ALT WITH 200 MG
  9. TECTA [Concomitant]
     Active Substance: PANTOPRAZOLE MAGNESIUM
  10. PROLIA [Suspect]
     Active Substance: DENOSUMAB
     Indication: PRODUCT USED FOR UNKNOWN INDICATION
     Dosage: 60 MG/ML, UNK
     Route: 065
     Dates: start: 20141201
  11. VITAMIN D [Concomitant]
     Active Substance: CHOLECALCIFEROL
  12. VITAMIN B12 [Concomitant]
     Active Substance: CYANOCOBALAMIN
     Dosage: Q2MO
  13. CIPRO [Concomitant]
     Active Substance: CIPROFLOXACIN HYDROCHLORIDE
  14. PERCOCET [Concomitant]
     Active Substance: ACETAMINOPHEN\OXYCODONE HYDROCHLORIDE
     Dosage: AS NECESSARY

REACTIONS (4)
  - Humerus fracture [Unknown]
  - Haemorrhage [Unknown]
  - Shoulder arthroplasty [Unknown]
  - Scleroderma [Unknown]

NARRATIVE: CASE EVENT DATE: 2016
